FAERS Safety Report 9059203 (Version 1)
Quarter: 2013Q1

REPORT INFORMATION
  Report Type: Spontaneous
  Country: US (occurrence: US)
  Receive Date: 20130211
  Receipt Date: 20130211
  Transmission Date: 20140127
  Serious: No
  Sender: FDA-Public Use
  Company Number: US-BRISTOL-MYERS SQUIBB COMPANY-17193277

PATIENT
  Age: 62 Year
  Sex: Male
  Weight: 90.7 kg

DRUGS (7)
  1. ONGLYZA TABS [Suspect]
  2. METFORMIN HCL [Suspect]
  3. ASPIRIN [Suspect]
  4. CRESTOR [Suspect]
     Indication: BLOOD CHOLESTEROL
     Route: 048
  5. LOTREL [Suspect]
  6. TRIAMTERENE [Suspect]
  7. LOVAZA [Suspect]

REACTIONS (1)
  - Abdominal pain upper [Unknown]
